FAERS Safety Report 6903874-5 (Version None)
Quarter: 2010Q3

REPORT INFORMATION
  Report Type: 
  Country: None (occurrence: None)
  Receive Date: 20100804
  Receipt Date: 20090109
  Transmission Date: 20110219
  Serious: Yes (Other)
  Sender: FDA-Public Use
  Company Number: US-PFIZER INC-2008086968

PATIENT
  Sex: Male
  Weight: 77.1 kg

DRUGS (2)
  1. LYRICA [Suspect]
     Indication: TORTICOLLIS
     Route: 048
  2. LYRICA [Suspect]
     Indication: MYALGIA

REACTIONS (2)
  - ASTHENIA [None]
  - PARAESTHESIA [None]
